FAERS Safety Report 10197271 (Version 1)
Quarter: 2014Q2

REPORT INFORMATION
  Report Type: Spontaneous
  Country: JP (occurrence: JP)
  Receive Date: 20140527
  Receipt Date: 20140527
  Transmission Date: 20141212
  Serious: Yes (Other)
  Sender: FDA-Public Use
  Company Number: JP-GLAXOSMITHKLINE-B0995730A

PATIENT
  Age: 6 Decade
  Sex: Male

DRUGS (3)
  1. VOTRIENT 200MG [Suspect]
     Indication: ANGIOSARCOMA
     Dosage: 800MG PER DAY
     Route: 048
     Dates: start: 20140410, end: 20140430
  2. VOTRIENT 200MG [Suspect]
     Indication: ANGIOSARCOMA
     Dosage: 600MG PER DAY
     Route: 048
     Dates: start: 20140430, end: 20140512
  3. PACLITAXEL [Suspect]
     Indication: ANGIOSARCOMA

REACTIONS (3)
  - Haemorrhage [Unknown]
  - Faecal incontinence [Recovering/Resolving]
  - Anaemia [Not Recovered/Not Resolved]
